FAERS Safety Report 6024141-0 (Version None)
Quarter: 2008Q4

REPORT INFORMATION
  Report Type: 
  Country: None (occurrence: None)
  Receive Date: 20081224
  Receipt Date: 20081208
  Transmission Date: 20090506
  Serious: Yes (Hospitalization)
  Sender: FDA-Public Use
  Company Number: 2008SP025195

PATIENT
  Age: 67 Year
  Sex: Female
  Weight: 66 kg

DRUGS (15)
  1. BETAMETHASONE [Suspect]
     Indication: DRUG USE FOR UNKNOWN INDICATION
     Dosage: PO
     Route: 048
     Dates: start: 20060203, end: 20060618
  2. SU 011248 (SUNITINIB MALATE) (NO PREF. NAME) [Suspect]
     Indication: RENAL CELL CARCINOMA
     Dosage: 12.5 MG;TID; PO
     Route: 048
     Dates: start: 20051125
  3. MORPHINE SULFATE [Concomitant]
  4. MORPHINE [Concomitant]
  5. AMITRIPTYLINE HCL [Concomitant]
  6. ACETYLSALICYLIC ACID [Concomitant]
  7. SIMVASTATIN [Concomitant]
  8. CANDESARTAN [Concomitant]
  9. METOPROLOL [Concomitant]
  10. OXAZEPAM [Concomitant]
  11. CITALOPRAM HYDROBROMIDE [Concomitant]
  12. POLYETHYLENE GLYCOL [Concomitant]
  13. SODIUM PICOSULFATE [Concomitant]
  14. INSULIN ASPART [Concomitant]
  15. METHOCLOPRAMIDE [Concomitant]

REACTIONS (3)
  - CONSTIPATION [None]
  - DIABETES MELLITUS INADEQUATE CONTROL [None]
  - HYPOGLYCAEMIA [None]
